FAERS Safety Report 6558676-9 (Version None)
Quarter: 2010Q1

REPORT INFORMATION
  Report Type: 
  Country: None (occurrence: None)
  Receive Date: 20100129
  Receipt Date: 20100114
  Transmission Date: 20100710
  Serious: Yes (Hospitalization)
  Sender: FDA-Public Use
  Company Number: GB-MYLANLABS-2010S1000626

PATIENT
  Age: 40 Year
  Sex: Female

DRUGS (14)
  1. PAROXETINE HYDROCHLORIDE [Suspect]
     Indication: DEPRESSION
     Dates: start: 19980901
  2. SEROXAT [Suspect]
     Indication: DEPRESSION
     Dates: start: 20020101
  3. SEROXAT [Suspect]
     Dates: start: 20040101
  4. CLOPIXOL [Concomitant]
     Indication: DRUG USE FOR UNKNOWN INDICATION
  5. DEPAKOTE [Concomitant]
     Indication: DRUG USE FOR UNKNOWN INDICATION
     Dates: start: 20030301
  6. DEPIXOL [Concomitant]
     Indication: DEPRESSION
     Dates: start: 20030301
  7. EPILIM [Concomitant]
     Indication: DRUG USE FOR UNKNOWN INDICATION
  8. LITHIUM [Concomitant]
     Indication: DRUG USE FOR UNKNOWN INDICATION
  9. OLANZAPINE [Concomitant]
     Indication: DRUG USE FOR UNKNOWN INDICATION
  10. PARACETAMOL [Concomitant]
     Indication: DRUG USE FOR UNKNOWN INDICATION
  11. QUETIAPINE [Concomitant]
     Indication: DRUG USE FOR UNKNOWN INDICATION
  12. RISPERIDONE [Concomitant]
     Indication: DRUG USE FOR UNKNOWN INDICATION
     Dates: start: 20021201
  13. SULPIRIDE [Concomitant]
     Indication: DRUG USE FOR UNKNOWN INDICATION
  14. ZOPICLONE [Concomitant]
     Indication: DRUG USE FOR UNKNOWN INDICATION

REACTIONS (5)
  - BIPOLAR DISORDER [None]
  - CONDITION AGGRAVATED [None]
  - OVERDOSE [None]
  - SUICIDAL IDEATION [None]
  - SUICIDE ATTEMPT [None]
